FAERS Safety Report 7360360-9 (Version None)
Quarter: 2011Q1

REPORT INFORMATION
  Report Type: 
  Country: None (occurrence: None)
  Receive Date: 20110310
  Receipt Date: 20110228
  Transmission Date: 20110831
  Serious: Yes (Hospitalization)
  Sender: FDA-Public Use
  Company Number: 027763

PATIENT
  Sex: Female
  Weight: 52 kg

DRUGS (3)
  1. KEPPRA [Suspect]
     Indication: CONVULSION
     Dosage: 500 MG, BID, (50% DOSE REDUCTION)
     Dates: start: 20101217, end: 20101222
  2. KEPPRA [Suspect]
     Indication: CONVULSION
     Dosage: 500 MG, BID, (50% DOSE REDUCTION)
     Dates: start: 20101222, end: 20110110
  3. LAMOTRIGINE [Concomitant]

REACTIONS (6)
  - PSEUDODEMENTIA [None]
  - APHAGIA [None]
  - APHASIA [None]
  - IMPAIRED WORK ABILITY [None]
  - FLUID INTAKE REDUCED [None]
  - MOVEMENT DISORDER [None]
